FAERS Safety Report 4586540-3 (Version None)
Quarter: 2005Q1

REPORT INFORMATION
  Report Type: 
  Country: None (occurrence: None)
  Receive Date: 20050218
  Receipt Date: 20040210
  Transmission Date: 20050727
  Serious: No
  Sender: FDA-Public Use
  Company Number: US-BRISTOL-MYERS SQUIBB COMPANY-12501672

PATIENT
  Age: 70 Year
  Sex: Male

DRUGS (5)
  1. TAXOL [Suspect]
     Indication: NON-SMALL CELL LUNG CANCER
     Route: 042
  2. ONXOL [Suspect]
     Indication: NON-SMALL CELL LUNG CANCER
     Route: 042
  3. PACLITAXEL [Suspect]
     Indication: NON-SMALL CELL LUNG CANCER
     Route: 042
  4. FRAGMIN [Concomitant]
     Indication: DEEP VEIN THROMBOSIS
  5. FRAGMIN [Concomitant]
     Indication: THROMBOPHLEBITIS SUPERFICIAL

REACTIONS (1)
  - INJECTION SITE REACTION [None]
